FAERS Safety Report 6369316-6 (Version None)
Quarter: 2009Q3

REPORT INFORMATION
  Report Type: 
  Country: None (occurrence: None)
  Receive Date: 20090916
  Receipt Date: 20090901
  Transmission Date: 20100115
  Serious: Yes (Death, Hospitalization)
  Sender: FDA-Public Use
  Company Number: 2009001113

PATIENT
  Age: 65 Year
  Sex: Female

DRUGS (8)
  1. TARCEVA [Suspect]
     Indication: NON-SMALL CELL LUNG CANCER
     Dosage: (150 MG,QD),ORAL
     Route: 048
     Dates: start: 20090212, end: 20090325
  2. GEMCITABINE [Concomitant]
  3. CARBOPLATIN [Concomitant]
  4. LEVOTHYROXINE SODIUM [Concomitant]
  5. CO-CODAMOL (PANADEINE CO) [Concomitant]
  6. LANSOPRAZOLE [Concomitant]
  7. DEXAMETHASONE TAB [Concomitant]
  8. LACTULOSE [Concomitant]

REACTIONS (5)
  - ACUTE HEPATIC FAILURE [None]
  - CHOLESTASIS [None]
  - HEPATIC CONGESTION [None]
  - PERICARDIAL EFFUSION [None]
  - PLEURAL EFFUSION [None]
